FAERS Safety Report 21712389 (Version 10)
Quarter: 2023Q2

REPORT INFORMATION
  Report Type: Report from Study
  Country: US (occurrence: US)
  Receive Date: 20221212
  Receipt Date: 20230527
  Transmission Date: 20230721
  Serious: No
  Sender: FDA-Public Use
  Company Number: US-002147023-NVSC2022US287572

PATIENT
  Sex: Female

DRUGS (2)
  1. COSENTYX [Suspect]
     Active Substance: SECUKINUMAB
     Indication: Psoriasis
     Dosage: 300 MG, QW
     Route: 058
     Dates: start: 20221205
  2. COSENTYX [Suspect]
     Active Substance: SECUKINUMAB
     Dosage: UNK ( LATEST ON JANUARY 2)
     Route: 065

REACTIONS (8)
  - Migraine [Recovering/Resolving]
  - Injection site pruritus [Recovered/Resolved]
  - Psoriasis [Unknown]
  - Upper respiratory tract infection [Recovering/Resolving]
  - Illness [Unknown]
  - Injection site erythema [Unknown]
  - Injection site induration [Unknown]
  - Injection site pruritus [Unknown]
